FAERS Safety Report 25544245 (Version 4)
Quarter: 2025Q3

REPORT INFORMATION
  Report Type: Spontaneous
  Country: CA (occurrence: CA)
  Receive Date: 20250711
  Receipt Date: 20250725
  Transmission Date: 20251021
  Serious: No
  Sender: PFIZER
  Company Number: CA-PFIZER INC-202500134355

PATIENT
  Age: 82 Year
  Sex: Female

DRUGS (13)
  1. SOMAVERT [Suspect]
     Active Substance: PEGVISOMANT
     Indication: Acromegaly
     Dosage: 10 MG, 1X/DAY
     Route: 058
     Dates: start: 20130821
  2. ASPIRIN [Concomitant]
     Active Substance: ASPIRIN
  3. AVAPRO [Concomitant]
     Active Substance: IRBESARTAN
  4. BISOPROLOL [Concomitant]
     Active Substance: BISOPROLOL
  5. CELEBREX [Concomitant]
     Active Substance: CELECOXIB
     Route: 048
  6. COLACE [Concomitant]
     Active Substance: DOCUSATE SODIUM
  7. CALCIUM [Concomitant]
     Active Substance: CALCIUM
  8. DOSTINEX [Concomitant]
     Active Substance: CABERGOLINE
     Route: 048
  9. ELIQUIS [Concomitant]
     Active Substance: APIXABAN
     Route: 065
  10. FERROUS SULFATE [Concomitant]
     Active Substance: FERROUS SULFATE
  11. GLUCOSAMINE [Concomitant]
     Active Substance: GLUCOSAMINE
  12. FISH OIL [Concomitant]
     Active Substance: FISH OIL
  13. VESICARE [Concomitant]
     Active Substance: SOLIFENACIN SUCCINATE

REACTIONS (3)
  - Device breakage [Unknown]
  - Device mechanical issue [Unknown]
  - Device leakage [Unknown]

NARRATIVE: CASE EVENT DATE: 20250701
